FAERS Safety Report 16043941 (Version 1)
Quarter: 2019Q1

REPORT INFORMATION
  Report Type: Spontaneous
  Country: CN (occurrence: CN)
  Receive Date: 20190306
  Receipt Date: 20190306
  Transmission Date: 20190418
  Serious: Yes (Other)
  Sender: FDA-Public Use
  Company Number: CN-PFIZER INC-2019093030

PATIENT
  Age: 55 Year
  Sex: Male
  Weight: 60 kg

DRUGS (4)
  1. CALCIUM GLUCONATE. [Suspect]
     Active Substance: CALCIUM GLUCONATE
     Dosage: UNK
     Route: 041
     Dates: start: 20190207
  2. METHYLPREDNISOLONE. [Suspect]
     Active Substance: METHYLPREDNISOLONE
     Indication: ANTIINFLAMMATORY THERAPY
     Dosage: UNK
     Dates: start: 20190207
  3. PROMETHAZINE [Suspect]
     Active Substance: PROMETHAZINE\PROMETHAZINE HYDROCHLORIDE
     Dosage: UNK
     Route: 030
     Dates: start: 20190207
  4. METHYLPREDNISOLONE. [Suspect]
     Active Substance: METHYLPREDNISOLONE
     Indication: DIURETIC THERAPY

REACTIONS (15)
  - Blood uric acid increased [Unknown]
  - Alpha hydroxybutyrate dehydrogenase increased [Unknown]
  - Blood chloride increased [Unknown]
  - Alanine aminotransferase increased [Unknown]
  - Aspartate aminotransferase increased [Unknown]
  - Coagulopathy [Unknown]
  - Blood creatinine increased [Unknown]
  - Bilirubin conjugated increased [Unknown]
  - Blood urea increased [Unknown]
  - Chromaturia [Unknown]
  - Blood creatine phosphokinase MB increased [Unknown]
  - Blood bilirubin unconjugated increased [Unknown]
  - Blood lactate dehydrogenase increased [Unknown]
  - Blood bilirubin increased [Unknown]
  - Blood urea nitrogen/creatinine ratio decreased [Unknown]

NARRATIVE: CASE EVENT DATE: 20190207
